FAERS Safety Report 25003102 (Version 1)
Quarter: 2025Q1

REPORT INFORMATION
  Report Type: Spontaneous
  Country: FR (occurrence: FR)
  Receive Date: 20250224
  Receipt Date: 20250224
  Transmission Date: 20250408
  Serious: Yes (Other)
  Sender: REGENERON
  Company Number: FR-BAYER-2025A022811

PATIENT
  Sex: Male

DRUGS (1)
  1. EYLEA HD [Suspect]
     Active Substance: AFLIBERCEPT
     Indication: Product used for unknown indication

REACTIONS (4)
  - Intra-ocular injection complication [Unknown]
  - Vitritis [Unknown]
  - Eye inflammation [Unknown]
  - Visual acuity reduced [Unknown]
